FAERS Safety Report 15370846 (Version 1)
Quarter: 2018Q3

REPORT INFORMATION
  Report Type: Spontaneous
  Country: MY (occurrence: MY)
  Receive Date: 20180911
  Receipt Date: 20180911
  Transmission Date: 20181010
  Serious: Yes (Hospitalization, Other)
  Sender: FDA-Public Use
  Company Number: MY-MYLANLABS-2018M1064851

PATIENT
  Age: 59 Year
  Sex: Male

DRUGS (5)
  1. HALOPERIDOL. [Suspect]
     Active Substance: HALOPERIDOL
     Indication: SCHIZOPHRENIA
     Dosage: 15MG EVERY NIGHT
     Route: 048
  2. FLUPENTIXOL DECANOATE [Suspect]
     Active Substance: FLUPENTIXOL DECANOATE
     Indication: SCHIZOPHRENIA
     Route: 030
  3. PROCYCLIDINE [Suspect]
     Active Substance: PROCYCLIDINE
     Indication: COGNITIVE DISORDER
     Route: 030
  4. BENZHEXOL                          /00002601/ [Suspect]
     Active Substance: TRIHEXYPHENIDYL
     Indication: SCHIZOPHRENIA
     Route: 048
  5. BENZHEXOL                          /00002601/ [Suspect]
     Active Substance: TRIHEXYPHENIDYL
     Dosage: INCREASED TO 2MG EVERY MORNING AND 4MG EVERY NIGHT
     Route: 048

REACTIONS (5)
  - Parkinsonism [Recovered/Resolved]
  - Cognitive disorder [Recovered/Resolved]
  - Delirium [Recovered/Resolved]
  - Condition aggravated [Recovered/Resolved]
  - Parotitis [Recovering/Resolving]
